FAERS Safety Report 19590696 (Version 1)
Quarter: 2021Q3

REPORT INFORMATION
  Report Type: Spontaneous
  Country: US (occurrence: US)
  Receive Date: 20210721
  Receipt Date: 20210721
  Transmission Date: 20211014
  Serious: No
  Sender: FDA-Public Use
  Company Number: US-SA-2021SA237109

PATIENT
  Sex: Female

DRUGS (4)
  1. DESONIDE. [Concomitant]
     Active Substance: DESONIDE
  2. PREDNISONE. [Concomitant]
     Active Substance: PREDNISONE
  3. CEPHALEXIN [CEFALEXIN] [Concomitant]
     Active Substance: CEPHALEXIN
  4. DUPIXENT [Suspect]
     Active Substance: DUPILUMAB
     Indication: DERMATITIS ATOPIC
     Dosage: 300 MG, QOW
     Route: 058
     Dates: start: 20210309

REACTIONS (1)
  - Conjunctivitis [Not Recovered/Not Resolved]
